FAERS Safety Report 5351457-3 (Version None)
Quarter: 2007Q2

REPORT INFORMATION
  Report Type: 
  Country: None (occurrence: None)
  Receive Date: 20070521
  Receipt Date: 20070321
  Transmission Date: 20071010
  Serious: No
  Sender: FDA-Public Use
  Company Number: WAES 0701USA00236

PATIENT
  Age: 69 Year
  Sex: Female

DRUGS (8)
  1. JANUVIA [Suspect]
     Indication: DIABETES MELLITUS
     Dosage: PO
     Route: 048
     Dates: start: 20061114
  2. DIOVAN [Concomitant]
  3. GLUCOPHAGE XR [Concomitant]
  4. GLUCOTROL XL [Concomitant]
  5. SYNTHROID [Concomitant]
  6. ZETIA [Concomitant]
  7. [THERAPY UNSPECIFIED] [Concomitant]
  8. POTASSIUM (UNSPECIFIED) [Concomitant]

REACTIONS (4)
  - HEADACHE [None]
  - RHINORRHOEA [None]
  - STOMACH DISCOMFORT [None]
  - TINNITUS [None]
